FAERS Safety Report 5019244-3 (Version None)
Quarter: 2006Q2

REPORT INFORMATION
  Report Type: 
  Country: None (occurrence: None)
  Receive Date: 20060531
  Receipt Date: 20060515
  Transmission Date: 20061013
  Serious: Yes (Other)
  Sender: FDA-Public Use
  Company Number: 2005JP002178

PATIENT
  Age: 37 Year
  Sex: Female

DRUGS (4)
  1. PROGRAF [Suspect]
     Indication: RENAL AND PANCREAS TRANSPLANT
     Dates: start: 20040701, end: 20041001
  2. SIMULECT [Concomitant]
  3. MYCOPHENOLATE MOFETIL [Concomitant]
  4. PREDNISOLONE [Concomitant]

REACTIONS (3)
  - BLOOD GLUCOSE INCREASED [None]
  - DRUG TOXICITY [None]
  - PANCREATITIS [None]
